FAERS Safety Report 17264238 (Version 1)
Quarter: 2020Q1

REPORT INFORMATION
  Report Type: Spontaneous
  Country: IT (occurrence: IT)
  Receive Date: 20200113
  Receipt Date: 20200113
  Transmission Date: 20200409
  Serious: Yes (Other)
  Sender: FDA-Public Use
  Company Number: IT-MYLANLABS-2020M1003266

PATIENT
  Age: 28 Year
  Sex: Female

DRUGS (5)
  1. PACLITAXEL. [Suspect]
     Active Substance: PACLITAXEL
     Indication: BREAST CANCER
     Dosage: UNK
     Route: 042
     Dates: start: 20190912
  2. ZANTAC [Concomitant]
     Active Substance: RANITIDINE HYDROCHLORIDE
     Indication: ANTACID THERAPY
  3. LANSOPRAZOLE. [Concomitant]
     Active Substance: LANSOPRAZOLE
     Indication: ANTACID THERAPY
  4. DECADRON [Concomitant]
     Active Substance: DEXAMETHASONE
  5. CARBOPLATIN. [Suspect]
     Active Substance: CARBOPLATIN
     Indication: BREAST CANCER
     Dosage: UNK
     Route: 042
     Dates: start: 20190912

REACTIONS (10)
  - Furuncle [Unknown]
  - Dry skin [Unknown]
  - Asthenia [Unknown]
  - Haematoma [Unknown]
  - Hot flush [Unknown]
  - Alopecia [Unknown]
  - Weight increased [Unknown]
  - Leukopenia [Unknown]
  - Dysgeusia [Unknown]
  - Nail ridging [Unknown]
